FAERS Safety Report 6536589-6 (Version None)
Quarter: 2010Q1

REPORT INFORMATION
  Report Type: 
  Country: None (occurrence: None)
  Receive Date: 20100106
  Receipt Date: 20091222
  Transmission Date: 20100710
  Serious: Yes (Hospitalization)
  Sender: FDA-Public Use
  Company Number: PL-JNJFOC-20090305006

PATIENT
  Age: 67 Year
  Sex: Female
  Weight: 73.4 kg

DRUGS (7)
  1. DECITABINE (DECITABINE) LYOPHILIZED POWDER [Suspect]
     Indication: ACUTE MYELOID LEUKAEMIA
     Dosage: 20 MG/M2, 1 IN 1 DAY, INTRAVENOUS
     Route: 042
     Dates: start: 20090226, end: 20090302
  2. DECITABINE (DECITABINE) LYOPHILIZED POWDER [Suspect]
     Indication: ACUTE MYELOID LEUKAEMIA
     Dosage: 20 MG/M2, 1 IN 1 DAY, INTRAVENOUS
     Route: 042
     Dates: start: 20090331, end: 20090404
  3. SALMETEROL (SALMETEROL) INHALATION [Concomitant]
  4. ESTRIOL (ESTRIOL) [Concomitant]
  5. TIBOLONE (TIBOLONE) [Concomitant]
  6. ALLOPURINOL [Concomitant]
  7. CICLESONIDE (CICLESONIDE) [Concomitant]

REACTIONS (3)
  - FEBRILE NEUTROPENIA [None]
  - HERPES VIRUS INFECTION [None]
  - RADICULITIS LUMBOSACRAL [None]
